FAERS Safety Report 16228771 (Version 4)
Quarter: 2019Q4

REPORT INFORMATION
  Report Type: Report from Study
  Country: BR (occurrence: BR)
  Receive Date: 20190423
  Receipt Date: 20191015
  Transmission Date: 20200122
  Serious: Yes (Other)
  Sender: FDA-Public Use
  Company Number: PHHY2019BR092297

PATIENT
  Age: 32 Year
  Sex: Female

DRUGS (8)
  1. COSENTYX [Suspect]
     Active Substance: SECUKINUMAB
     Dosage: UNK
     Route: 065
     Dates: start: 20190215
  2. COSENTYX [Suspect]
     Active Substance: SECUKINUMAB
     Indication: PRODUCT USED FOR UNKNOWN INDICATION
     Dosage: UNK
     Route: 065
     Dates: start: 20190205
  3. COSENTYX [Suspect]
     Active Substance: SECUKINUMAB
     Dosage: UNK
     Route: 065
     Dates: start: 201904
  4. FLUCONAZOL [Suspect]
     Active Substance: FLUCONAZOLE
     Indication: CANDIDA INFECTION
     Dosage: 1 DF, QW
     Route: 065
  5. COSENTYX [Suspect]
     Active Substance: SECUKINUMAB
     Dosage: UNK
     Route: 065
     Dates: start: 20190301
  6. AMOXICILLIN AND CLAVULANATE POTASSIUM [Suspect]
     Active Substance: AMOXICILLIN\CLAVULANATE POTASSIUM
     Indication: CANDIDA INFECTION
     Route: 065
  7. ADALIMUMAB [Suspect]
     Active Substance: ADALIMUMAB
     Indication: PRODUCT USED FOR UNKNOWN INDICATION
     Route: 065
  8. ETANERCEPT [Concomitant]
     Active Substance: ETANERCEPT
     Indication: PRODUCT USED FOR UNKNOWN INDICATION
     Route: 065

REACTIONS (33)
  - Psoriatic arthropathy [Recovering/Resolving]
  - Spondylitis [Not Recovered/Not Resolved]
  - Decreased appetite [Unknown]
  - Vomiting [Unknown]
  - Malaise [Unknown]
  - Pyrexia [Unknown]
  - Throat irritation [Not Recovered/Not Resolved]
  - Contusion [Unknown]
  - Nasopharyngitis [Unknown]
  - Female reproductive tract disorder [Recovering/Resolving]
  - Dyspnoea [Recovering/Resolving]
  - Abdominal distension [Unknown]
  - Rhinitis [Unknown]
  - Skin swelling [Unknown]
  - Candida infection [Recovering/Resolving]
  - Cough [Unknown]
  - Throat tightness [Not Recovered/Not Resolved]
  - Dry skin [Unknown]
  - Labyrinthitis [Recovering/Resolving]
  - Ear congestion [Unknown]
  - Influenza [Recovering/Resolving]
  - Nasal congestion [Unknown]
  - Rhinorrhoea [Unknown]
  - Musculoskeletal stiffness [Not Recovered/Not Resolved]
  - Urinary tract infection [Unknown]
  - Dysstasia [Unknown]
  - Nausea [Recovering/Resolving]
  - Arthralgia [Unknown]
  - Therapeutic product effect incomplete [Unknown]
  - Respiratory tract infection [Recovering/Resolving]
  - Pharyngitis [Recovered/Resolved]
  - Oropharyngeal plaque [Unknown]
  - Abdominal discomfort [Unknown]

NARRATIVE: CASE EVENT DATE: 201902
